FAERS Safety Report 12791131 (Version 1)
Quarter: 2016Q3

REPORT INFORMATION
  Report Type: Report from Study
  Country: US (occurrence: US)
  Receive Date: 20160929
  Receipt Date: 20160929
  Transmission Date: 20161109
  Serious: Yes (Hospitalization, Other)
  Sender: FDA-Public Use
  Company Number: US-ROCHE-1083392

PATIENT
  Sex: Female
  Weight: 62.5 kg

DRUGS (18)
  1. BEVACIZUMAB [Suspect]
     Active Substance: BEVACIZUMAB
     Indication: PANCREATIC NEOPLASM
     Dosage: 10 MG/KG, CYCLE 28 DAYS
     Route: 042
     Dates: start: 20110221
  2. BEVACIZUMAB [Suspect]
     Active Substance: BEVACIZUMAB
     Dosage: 10 MG/KG, CYCLE 28 DAYS
     Route: 042
     Dates: start: 20111005
  3. BEVACIZUMAB [Suspect]
     Active Substance: BEVACIZUMAB
     Dosage: 10MG/KG, CYCLE 28 DAYS
     Route: 042
     Dates: start: 20110321
  4. BEVACIZUMAB [Suspect]
     Active Substance: BEVACIZUMAB
     Dosage: 10MG/KG, CYCLE 28 DAYS
     Route: 042
     Dates: start: 20110418
  5. BEVACIZUMAB [Suspect]
     Active Substance: BEVACIZUMAB
     Dosage: 10 MG/KG, CYCLE 28 DAYS
     Route: 042
     Dates: start: 20120208
  6. BEVACIZUMAB [Suspect]
     Active Substance: BEVACIZUMAB
     Dosage: 10 MG/KG, CYCLE 28 DAYS
     Route: 042
     Dates: start: 20110613
  7. BEVACIZUMAB [Suspect]
     Active Substance: BEVACIZUMAB
     Dosage: 10 MG/KG, CYCLE 28 DAYS
     Route: 042
     Dates: start: 20110718
  8. BEVACIZUMAB [Suspect]
     Active Substance: BEVACIZUMAB
     Dosage: 10 MG/KG, CYCLE 28 DAYS
     Route: 042
     Dates: start: 20110815
  9. BEVACIZUMAB [Suspect]
     Active Substance: BEVACIZUMAB
     Dosage: 10 MG/KG, CYCLE 28 DAYS
     Route: 042
     Dates: start: 20110907
  10. BEVACIZUMAB [Suspect]
     Active Substance: BEVACIZUMAB
     Dosage: 10 MG/KG, CYCLE 28 DAYS
     Route: 042
     Dates: start: 20111130
  11. BEVACIZUMAB [Suspect]
     Active Substance: BEVACIZUMAB
     Dosage: 10 MG/KG, CYCLE 28 DAYS
     Route: 042
     Dates: start: 20111228
  12. TEMSIROLIMUS [Suspect]
     Active Substance: TEMSIROLIMUS
     Dosage: ALSO RECEIVED ON 13/JUN/2011,
     Route: 042
     Dates: start: 20110516
  13. TEMSIROLIMUS [Suspect]
     Active Substance: TEMSIROLIMUS
     Indication: PANCREATIC NEOPLASM
     Dosage: CYCLE 28 DAYS
     Route: 042
     Dates: start: 20110221
  14. TEMSIROLIMUS [Suspect]
     Active Substance: TEMSIROLIMUS
     Route: 042
     Dates: start: 20110718
  15. BEVACIZUMAB [Suspect]
     Active Substance: BEVACIZUMAB
     Dosage: 10MG/KG, CYCLE 28 DAYS
     Route: 042
     Dates: start: 20110516
  16. BEVACIZUMAB [Suspect]
     Active Substance: BEVACIZUMAB
     Dosage: 10 MG/KG, CYCLE 28 DAYS
     Route: 042
     Dates: start: 20111102
  17. TEMSIROLIMUS [Suspect]
     Active Substance: TEMSIROLIMUS
     Dosage: ALSO RECEIVED ON 18/APR/2011,
     Route: 042
     Dates: start: 20110321
  18. TEMSIROLIMUS [Suspect]
     Active Substance: TEMSIROLIMUS
     Route: 042
     Dates: start: 20110815

REACTIONS (6)
  - Acute kidney injury [Not Recovered/Not Resolved]
  - Hypophosphataemia [Unknown]
  - Hypokalaemia [Unknown]
  - Platelet count decreased [Unknown]
  - Blood bilirubin increased [Unknown]
  - Blood creatinine increased [Not Recovered/Not Resolved]
